FAERS Safety Report 17420939 (Version 1)
Quarter: 2020Q1

REPORT INFORMATION
  Report Type: Spontaneous
  Country: US (occurrence: US)
  Receive Date: 20200214
  Receipt Date: 20200214
  Transmission Date: 20200409
  Serious: No
  Sender: FDA-Public Use
  Company Number: US-THERAPEUTICSMD-2019TMD04313

PATIENT
  Age: 61 Year
  Sex: Female
  Weight: 83.9 kg

DRUGS (5)
  1. CALCIUM/MAGNESIUM/D [Concomitant]
  2. BIJUVA [Suspect]
     Active Substance: ESTRADIOL\PROGESTERONE
     Indication: INSOMNIA
  3. OLLY [Concomitant]
     Dosage: AT NIGHT
  4. MELATONIN [Concomitant]
     Active Substance: MELATONIN
     Dosage: AT NIGHT
  5. BIJUVA [Suspect]
     Active Substance: ESTRADIOL\PROGESTERONE
     Indication: HOT FLUSH
     Dosage: 1 CAPSULES, 1X/DAY
     Route: 048
     Dates: start: 20191008, end: 20191020

REACTIONS (2)
  - Breast engorgement [Recovering/Resolving]
  - Breast pain [Recovering/Resolving]

NARRATIVE: CASE EVENT DATE: 201910
